FAERS Safety Report 14299251 (Version 1)
Quarter: 2017Q4

REPORT INFORMATION
  Report Type: Spontaneous
  Country: ES (occurrence: ES)
  Receive Date: 20171219
  Receipt Date: 20171219
  Transmission Date: 20180321
  Serious: Yes (Other)
  Sender: FDA-Public Use
  Company Number: ES-ASTRAZENECA-2017SF28221

PATIENT
  Age: 89 Year
  Sex: Male

DRUGS (3)
  1. SIMVASTATIN. [Interacting]
     Active Substance: SIMVASTATIN
     Route: 048
     Dates: start: 20171211, end: 20171211
  2. OMEPRAZOL [Suspect]
     Active Substance: OMEPRAZOLE
     Route: 048
     Dates: start: 20171211, end: 20171211
  3. QUETIAPINE FUMARATE. [Interacting]
     Active Substance: QUETIAPINE FUMARATE
     Route: 048
     Dates: start: 20171211, end: 20171211

REACTIONS (2)
  - Wrong patient received medication [Unknown]
  - Somnolence [Unknown]

NARRATIVE: CASE EVENT DATE: 20171211
